FAERS Safety Report 16993240 (Version 1)
Quarter: 2019Q4

REPORT INFORMATION
  Report Type: Spontaneous
  Country: US (occurrence: US)
  Receive Date: 20191104
  Receipt Date: 20191104
  Transmission Date: 20200122
  Serious: No
  Sender: FDA-Public Use
  Company Number: None

PATIENT
  Age: 45 Year
  Weight: 68.85 kg

DRUGS (1)
  1. ISOVUE [Suspect]
     Active Substance: IOPAMIDOL
     Indication: ABDOMINAL PAIN UPPER
     Route: 042

REACTIONS (4)
  - Pruritus [None]
  - Urticaria [None]
  - Feeling abnormal [None]
  - Chest discomfort [None]

NARRATIVE: CASE EVENT DATE: 20191001
